FAERS Safety Report 4595443-X (Version None)
Quarter: 2005Q1

REPORT INFORMATION
  Report Type: 
  Country: None (occurrence: None)
  Receive Date: 20050224
  Receipt Date: 20050204
  Transmission Date: 20050727
  Serious: Yes (Death)
  Sender: FDA-Public Use
  Company Number: US_0501110055

PATIENT
  Age: 48 Year
  Sex: Female

DRUGS (3)
  1. ZYPREXA [Suspect]
     Indication: BIPOLAR II DISORDER
     Dosage: 5 MG AT BEDTIME
     Dates: start: 20041129, end: 20041202
  2. PROZAC [Suspect]
     Dosage: 60 MG/1 DAY
     Dates: end: 20041129
  3. ZOLOFT [Concomitant]

REACTIONS (2)
  - COMPLETED SUICIDE [None]
  - INJURY ASPHYXIATION [None]
